FAERS Safety Report 21945432 (Version 1)
Quarter: 2023Q1

REPORT INFORMATION
  Report Type: Spontaneous
  Country: GB (occurrence: GB)
  Receive Date: 20230202
  Receipt Date: 20230202
  Transmission Date: 20230417
  Serious: Yes (Other)
  Sender: FDA-Public Use
  Company Number: GB-MHRA-MED-202301191652456820-LTFPH

PATIENT
  Age: 63 Year
  Sex: Female

DRUGS (6)
  1. LAMISIL [Suspect]
     Active Substance: TERBINAFINE HYDROCHLORIDE
     Indication: Product used for unknown indication
     Dosage: UNK
     Route: 065
  2. TERBINAFINE [Suspect]
     Active Substance: TERBINAFINE
     Indication: Rash
     Dosage: 250 MG (250 MG /DAY NB HAD A GAP OF 10 DAYS AFTER 14 DAYS AND RECOMMENCED FOR FURTHER 35 DAYS)
     Route: 065
     Dates: start: 20221017
  3. TERBINAFINE HYDROCHLORIDE [Suspect]
     Active Substance: TERBINAFINE HYDROCHLORIDE
     Indication: Rash
     Dosage: 250 MG (250 MG /DAY NB HAD A GAP OF 10 DAYS AFTER 14 DAYS AND RECOMMENCED FOR FURTHER 35 DAYS)
     Route: 061
     Dates: start: 20221017
  4. BETAMETHASONE [Concomitant]
     Active Substance: BETAMETHASONE
     Indication: Skin plaque
     Dosage: UNK
     Route: 065
     Dates: start: 20211111
  5. COCOIS [Concomitant]
     Indication: Skin plaque
     Dosage: UNK
     Route: 065
     Dates: start: 20221125
  6. KETOCONAZOLE [Concomitant]
     Active Substance: KETOCONAZOLE
     Indication: Skin disorder
     Dosage: UNK
     Route: 065
     Dates: start: 20221017

REACTIONS (3)
  - Taste disorder [Not Recovered/Not Resolved]
  - Depressed mood [Not Recovered/Not Resolved]
  - Weight decreased [Not Recovered/Not Resolved]

NARRATIVE: CASE EVENT DATE: 20221201
